FAERS Safety Report 6894700-1 (Version None)
Quarter: 2010Q3

REPORT INFORMATION
  Report Type: 
  Country: None (occurrence: None)
  Receive Date: 20100730
  Receipt Date: 20100730
  Transmission Date: 20110219
  Serious: Yes (Other)
  Sender: FDA-Public Use
  Company Number: None

PATIENT
  Age: 72 Year
  Sex: Female
  Weight: 72.1219 kg

DRUGS (20)
  1. CARDIZEM CD [Suspect]
     Indication: ANGINA PECTORIS
     Dosage: CARDIAZEM CD 180 MG ONE DAILY ORAL
     Route: 048
     Dates: start: 20091101
  2. CARDIZEM CD [Suspect]
     Indication: HYPERTENSION
     Dosage: CARDIAZEM CD 180 MG ONE DAILY ORAL
     Route: 048
     Dates: start: 20091101
  3. CARDIZEM CD [Suspect]
     Indication: VENOUS INSUFFICIENCY
     Dosage: CARDIAZEM CD 180 MG ONE DAILY ORAL
     Route: 048
     Dates: start: 20091101
  4. SYNTHROID [Concomitant]
  5. LISINOPRIL [Concomitant]
  6. ZEITA [Concomitant]
  7. MULTIVITS [Concomitant]
  8. ASPIRIN [Concomitant]
  9. FISH OIL [Concomitant]
  10. CALCIUM [Concomitant]
  11. COZAAR [Concomitant]
  12. VIT C [Concomitant]
  13. TORSIMIDE [Concomitant]
  14. OSTE METRIX [Concomitant]
  15. GARLIC COMPLEX [Concomitant]
  16. VITAMIN B COMPLEX CAP [Concomitant]
  17. VITAMIN B-12 [Concomitant]
  18. MULTIVITAMIN [Concomitant]
  19. SHAKLEE VITA [Concomitant]
  20. FLEX PROTEX [Concomitant]

REACTIONS (2)
  - OEDEMA PERIPHERAL [None]
  - PRODUCT SUBSTITUTION ISSUE [None]
